FAERS Safety Report 7075541-1 (Version None)
Quarter: 2010Q4

REPORT INFORMATION
  Report Type: 
  Country: None (occurrence: None)
  Receive Date: 20101030
  Receipt Date: 20101006
  Transmission Date: 20110411
  Serious: No
  Sender: FDA-Public Use
  Company Number: US-WYE-H18009510

PATIENT
  Age: 40 Year
  Sex: Female

DRUGS (1)
  1. ADVIL PM [Suspect]
     Dosage: 12 CAPLETS
     Route: 048
     Dates: start: 20101005

REACTIONS (3)
  - DIZZINESS [None]
  - FEELING ABNORMAL [None]
  - OVERDOSE [None]
